FAERS Safety Report 4564909-0 (Version None)
Quarter: 2005Q1

REPORT INFORMATION
  Report Type: 
  Country: None (occurrence: None)
  Receive Date: 20050126
  Receipt Date: 20050105
  Transmission Date: 20050727
  Serious: Yes (Death)
  Sender: FDA-Public Use
  Company Number: 20050100004

PATIENT
  Sex: Female

DRUGS (4)
  1. SUPRANE [Suspect]
     Indication: ANAESTHESIA
     Dates: start: 20050104, end: 20050104
  2. PHENTANYL (FENTANYL) [Concomitant]
  3. PROPOFOL [Concomitant]
  4. VECURONIUM [Concomitant]

REACTIONS (2)
  - HYPERTHERMIA MALIGNANT [None]
  - PROCEDURAL COMPLICATION [None]
